FAERS Safety Report 4908961-9 (Version None)
Quarter: 2006Q1

REPORT INFORMATION
  Report Type: 
  Country: None (occurrence: None)
  Receive Date: 20060209
  Receipt Date: 20060129
  Transmission Date: 20060701
  Serious: Yes (Other)
  Sender: FDA-Public Use
  Company Number: 2006013935

PATIENT
  Sex: Male

DRUGS (3)
  1. SUDAFED 12 HOUR [Suspect]
     Dosage: ORAL
     Route: 048
  2. SUDAFED PE (PHENYLEPHRINE) [Suspect]
     Dosage: ORAL
     Route: 048
  3. SUMATRIPTAN SUCCINATE [Concomitant]

REACTIONS (1)
  - COELIAC DISEASE [None]
